FAERS Safety Report 16112454 (Version 1)
Quarter: 2019Q2

REPORT INFORMATION
  Report Type: Spontaneous
  Country: US (occurrence: US)
  Receive Date: 20190324
  Receipt Date: 20190324
  Transmission Date: 20190711
  Serious: Yes (Other)
  Sender: FDA-Public Use
  Company Number: None

PATIENT
  Age: 52 Year
  Sex: Male
  Weight: 144 kg

DRUGS (22)
  1. ALBUTERAL INHALER [Concomitant]
  2. ARTHRITIS [Concomitant]
     Active Substance: TROLAMINE SALICYLATE
  3. SUDAFED [Concomitant]
     Active Substance: PSEUDOEPHEDRINE HYDROCHLORIDE
  4. JARDIANCE [Concomitant]
     Active Substance: EMPAGLIFLOZIN
  5. SUDAFED [Concomitant]
     Active Substance: PSEUDOEPHEDRINE HYDROCHLORIDE
  6. DICLOFENAC [Concomitant]
     Active Substance: DICLOFENAC
  7. HYDROCODONE APA [Concomitant]
  8. LOPERAMIDE [Concomitant]
     Active Substance: LOPERAMIDE
  9. BENADRYL [Concomitant]
     Active Substance: DIPHENHYDRAMINE HYDROCHLORIDE
  10. BYSTOLIC [Concomitant]
     Active Substance: NEBIVOLOL HYDROCHLORIDE
  11. IMITREX [Concomitant]
     Active Substance: SUMATRIPTAN SUCCINATE
  12. VOLTARIN [Concomitant]
  13. LANSOPRAZOLE. [Concomitant]
     Active Substance: LANSOPRAZOLE
  14. GABAPENTIN. [Concomitant]
     Active Substance: GABAPENTIN
  15. ASPIRIN (BABY) [Concomitant]
     Active Substance: ASPIRIN
  16. ICY HOT [Concomitant]
     Active Substance: MENTHOL\METHYL SALICYLATE
  17. VITAMIN D3 [Concomitant]
     Active Substance: CHOLECALCIFEROL
  18. CELECOXIB. [Suspect]
     Active Substance: CELECOXIB
     Indication: PAIN MANAGEMENT
     Dosage: ?          QUANTITY:1 CAPSULE(S);?
     Route: 048
     Dates: start: 20190316, end: 20190320
  19. AMMONIUM LACTATE CREAM [Concomitant]
     Active Substance: AMMONIUM LACTATE
  20. CYCLOBENZAPRINE. [Concomitant]
     Active Substance: CYCLOBENZAPRINE
  21. EPIPEN [Concomitant]
     Active Substance: EPINEPHRINE
  22. ASPRECREME [Concomitant]

REACTIONS (3)
  - Joint stiffness [None]
  - Pain [None]
  - Arthralgia [None]

NARRATIVE: CASE EVENT DATE: 20190316
